FAERS Safety Report 8947365 (Version 3)
Quarter: 2014Q4

REPORT INFORMATION
  Report Type: Spontaneous
  Country: US (occurrence: US)
  Receive Date: 20121204
  Receipt Date: 20141128
  Transmission Date: 20150529
  Serious: No
  Sender: FDA-Public Use
  Company Number: US-AMGEN-USASP2012066405

PATIENT
  Age: 47 Year
  Sex: Female

DRUGS (4)
  1. ENBREL [Suspect]
     Active Substance: ETANERCEPT
     Indication: PSORIATIC ARTHROPATHY
     Dosage: 50 MG, QWK
     Route: 065
     Dates: start: 20120401
  2. METHOTREXATE [Suspect]
     Active Substance: METHOTREXATE
     Indication: PRODUCT USED FOR UNKNOWN INDICATION
     Dosage: UNK
     Route: 065
     Dates: end: 2013
  3. ARAVA [Suspect]
     Active Substance: LEFLUNOMIDE
     Indication: PRODUCT USED FOR UNKNOWN INDICATION
     Dosage: UNK
     Route: 065
     Dates: start: 201405, end: 201410
  4. PLAQUENIL [Suspect]
     Active Substance: HYDROXYCHLOROQUINE SULFATE
     Indication: PRODUCT USED FOR UNKNOWN INDICATION
     Dosage: UNK
     Route: 065
     Dates: start: 2013, end: 2014

REACTIONS (19)
  - Nausea [Recovered/Resolved]
  - Injection site erythema [Recovered/Resolved]
  - Diarrhoea [Recovered/Resolved]
  - Peripheral swelling [Not Recovered/Not Resolved]
  - Fatigue [Recovered/Resolved]
  - Migraine [Recovered/Resolved]
  - Joint swelling [Not Recovered/Not Resolved]
  - Drug effect incomplete [Recovered/Resolved]
  - Musculoskeletal stiffness [Not Recovered/Not Resolved]
  - Ear discomfort [Recovered/Resolved]
  - Injection site warmth [Recovered/Resolved]
  - Hepatic enzyme increased [Recovered/Resolved]
  - Sinus disorder [Recovered/Resolved]
  - Stomatitis [Recovered/Resolved]
  - Injection site induration [Recovered/Resolved]
  - Gallbladder disorder [Recovered/Resolved]
  - Drug ineffective [Recovered/Resolved]
  - Neuropathy peripheral [Recovered/Resolved]
  - Alopecia [Not Recovered/Not Resolved]

NARRATIVE: CASE EVENT DATE: 20120401
